FAERS Safety Report 8282350-4 (Version None)
Quarter: 2012Q2

REPORT INFORMATION
  Report Type: 
  Country: None (occurrence: None)
  Receive Date: 20120413
  Receipt Date: 20120410
  Transmission Date: 20120825
  Serious: Yes (Death)
  Sender: FDA-Public Use
  Company Number: ES-PFIZER INC-2012088783

PATIENT
  Age: 92 Year
  Sex: Male

DRUGS (4)
  1. NEURONTIN [Suspect]
     Indication: TRIGEMINAL NEURALGIA
     Dosage: 600 MG, 3X/DAY
     Route: 048
     Dates: start: 20050101
  2. LIORESAL [Suspect]
     Indication: TRIGEMINAL NEURALGIA
     Dosage: UNK
     Route: 048
     Dates: start: 20050101
  3. LORAZEPAM [Suspect]
     Dosage: 2 MG, UNK
     Route: 048
     Dates: start: 20111227
  4. METFORMIN [Concomitant]
     Indication: DIABETES MELLITUS
     Dosage: 850 MG, 3X/DAY
     Route: 048
     Dates: start: 20050101

REACTIONS (2)
  - CONFUSIONAL STATE [None]
  - SOMNOLENCE [None]
